FAERS Safety Report 26103544 (Version 1)
Quarter: 2025Q4

REPORT INFORMATION
  Report Type: Spontaneous
  Country: US (occurrence: US)
  Receive Date: 20251129
  Receipt Date: 20251129
  Transmission Date: 20260118
  Serious: No
  Sender: DAIICHI
  Company Number: US-DAIICHI SANKYO, INC.-DS-2025-178689-USAA

PATIENT
  Age: 75 Year
  Sex: Female

DRUGS (1)
  1. ENHERTU [Suspect]
     Active Substance: FAM-TRASTUZUMAB DERUXTECAN-NXKI
     Indication: Hormone receptor negative HER2 positive breast cancer
     Dosage: 100 MG
     Route: 065

REACTIONS (3)
  - Nausea [Unknown]
  - Alopecia [Unknown]
  - Intentional product use issue [Not Recovered/Not Resolved]
